FAERS Safety Report 10897795 (Version 2)
Quarter: 2015Q1

REPORT INFORMATION
  Report Type: Spontaneous
  Country: US (occurrence: US)
  Receive Date: 20150309
  Receipt Date: 20150309
  Transmission Date: 20150721
  Serious: Yes (Hospitalization, Other)
  Sender: FDA-Public Use
  Company Number: US-ACTAVIS-2015-03875

PATIENT
  Age: 69 Year
  Sex: Female
  Weight: 147 kg

DRUGS (5)
  1. ACYCLOVIR (AMALLC) [Suspect]
     Active Substance: ACYCLOVIR
     Indication: HERPES ZOSTER
     Dosage: 1.5 G, SINGLE
     Route: 042
  2. ONDANSETRON [Concomitant]
     Active Substance: ONDANSETRON
     Indication: NAUSEA
     Dosage: 4 MG, UNK
     Route: 065
  3. KETOROLAC [Suspect]
     Active Substance: KETOROLAC\KETOROLAC TROMETHAMINE
     Indication: PRODUCT USED FOR UNKNOWN INDICATION
     Dosage: 30 MG, UNK
     Route: 065
  4. ACYCLOVIR (AMALLC) [Suspect]
     Active Substance: ACYCLOVIR
     Dosage: 800 MG, 5 TIMES A DAY
     Route: 048
  5. ACYCLOVIR (AMALLC) [Suspect]
     Active Substance: ACYCLOVIR
     Dosage: 550 MG, DAILY
     Route: 042

REACTIONS (6)
  - Hallucination, visual [Recovered/Resolved]
  - Speech disorder [Recovered/Resolved]
  - Acute kidney injury [Recovered/Resolved]
  - Confusional state [Recovered/Resolved]
  - Dizziness [Recovered/Resolved]
  - Nausea [Recovered/Resolved]
